FAERS Safety Report 25655335 (Version 1)
Quarter: 2025Q3

REPORT INFORMATION
  Report Type: Spontaneous
  Country: US (occurrence: None)
  Receive Date: 20250806
  Receipt Date: 20250806
  Transmission Date: 20251021
  Serious: Yes (Other)
  Sender: FDA-CTU
  Company Number: None

PATIENT
  Sex: Female

DRUGS (3)
  1. SUZETRIGINE [Suspect]
     Active Substance: SUZETRIGINE
     Indication: Pain
     Dosage: 2 UNK - UNKNOWN TWICE  DAY ORAL ?
     Route: 048
     Dates: start: 20250706, end: 20250708
  2. SUZETRIGINE [Suspect]
     Active Substance: SUZETRIGINE
     Indication: Arthralgia
  3. SUZETRIGINE [Suspect]
     Active Substance: SUZETRIGINE
     Indication: Back pain

REACTIONS (3)
  - Swollen tongue [None]
  - Swelling face [None]
  - Therapy cessation [None]

NARRATIVE: CASE EVENT DATE: 20250709
